FAERS Safety Report 7977065-3 (Version None)
Quarter: 2011Q4

REPORT INFORMATION
  Report Type: 
  Country: None (occurrence: None)
  Receive Date: 20111213
  Receipt Date: 20111108
  Transmission Date: 20120403
  Serious: No
  Sender: FDA-Public Use
  Company Number: US-AMGEN-USASP2011058559

PATIENT
  Age: 45 Year
  Sex: Male

DRUGS (5)
  1. ENBREL [Suspect]
     Indication: PSORIATIC ARTHROPATHY
     Dosage: 25 MG, 2 TIMES/WK
  2. LISINOPRIL [Concomitant]
  3. GLYBURIDE [Concomitant]
  4. GLUCOPHAGE [Concomitant]
  5. ENBREL [Suspect]
     Indication: PSORIASIS

REACTIONS (2)
  - ARTHRALGIA [None]
  - URINARY TRACT INFECTION [None]
